FAERS Safety Report 8405012-9 (Version None)
Quarter: 2012Q2

REPORT INFORMATION
  Report Type: 
  Country: None (occurrence: None)
  Receive Date: 20120601
  Receipt Date: 20120107
  Transmission Date: 20120825
  Serious: No
  Sender: FDA-Public Use
  Company Number: US-NOVEN-12US003902

PATIENT
  Sex: Male
  Weight: 28.571 kg

DRUGS (2)
  1. INTUNIV [Concomitant]
     Indication: ATTENTION DEFICIT/HYPERACTIVITY DISORDER
     Dosage: 1 MG, UNK
     Route: 048
  2. DAYTRANA [Suspect]
     Indication: ATTENTION DEFICIT/HYPERACTIVITY DISORDER
     Dosage: 20 MG, QD
     Route: 062
     Dates: start: 20111101

REACTIONS (3)
  - APPLICATION SITE PRURITUS [None]
  - APPLICATION SITE PAIN [None]
  - APPLICATION SITE ERYTHEMA [None]
